FAERS Safety Report 18674590 (Version 1)
Quarter: 2020Q4

REPORT INFORMATION
  Report Type: Spontaneous
  Country: CN (occurrence: CN)
  Receive Date: 20201229
  Receipt Date: 20201229
  Transmission Date: 20210114
  Serious: Yes (Hospitalization, Other)
  Sender: FDA-Public Use
  Company Number: CN-TOPROL-2020000414

PATIENT
  Age: 33 Year
  Sex: Male
  Weight: 73 kg

DRUGS (3)
  1. DOXAZOSIN MESYLATE. [Suspect]
     Active Substance: DOXAZOSIN MESYLATE
     Indication: HYPERTENSION
     Route: 048
     Dates: start: 20200623, end: 20201215
  2. METOPROLOL. [Suspect]
     Active Substance: METOPROLOL
     Indication: HYPERTENSION
     Route: 048
     Dates: start: 20200623, end: 20201215
  3. NIFEDIPINE. [Suspect]
     Active Substance: NIFEDIPINE
     Indication: HYPERTENSION
     Route: 048
     Dates: start: 20200623, end: 20201215

REACTIONS (4)
  - Condition aggravated [Unknown]
  - Renal impairment [Unknown]
  - Azotaemia [Unknown]
  - Back pain [Unknown]

NARRATIVE: CASE EVENT DATE: 20201207
